FAERS Safety Report 4619595-8 (Version None)
Quarter: 2005Q1

REPORT INFORMATION
  Report Type: 
  Country: None (occurrence: None)
  Receive Date: 20050317
  Receipt Date: 20050317
  Transmission Date: 20050727
  Serious: No
  Sender: FDA-Public Use
  Company Number: None

PATIENT
  Age: 70 Year
  Sex: Male
  Weight: 134.7183 kg

DRUGS (8)
  1. WARFARIN SODIUM [Suspect]
     Indication: ATRIAL FIBRILLATION
     Dosage: 5 MG
     Dates: start: 20040817
  2. PRINIVIL [Concomitant]
  3. ATENOLOL [Concomitant]
  4. AVADIA [Concomitant]
  5. DIGOXIN [Concomitant]
  6. AMARYL [Concomitant]
  7. FUROSMIDE [Concomitant]
  8. INSULIN [Concomitant]

REACTIONS (2)
  - ANTICOAGULATION DRUG LEVEL BELOW THERAPEUTIC [None]
  - PHARMACEUTICAL PRODUCT COMPLAINT [None]
